FAERS Safety Report 18972968 (Version 1)
Quarter: 2021Q1

REPORT INFORMATION
  Report Type: Spontaneous
  Country: BR (occurrence: BR)
  Receive Date: 20210305
  Receipt Date: 20210305
  Transmission Date: 20210420
  Serious: Yes (Hospitalization, Other)
  Sender: FDA-Public Use
  Company Number: BR-ABBVIE-21P-020-3800674-00

PATIENT
  Sex: Female
  Weight: 66 kg

DRUGS (6)
  1. DEPAKOTE [Suspect]
     Active Substance: DIVALPROEX SODIUM
     Indication: ANTISOCIAL BEHAVIOUR
     Dosage: MORNING, NIGHT
     Route: 048
     Dates: start: 2019
  2. RISPERIDONE. [Suspect]
     Active Substance: RISPERIDONE
     Indication: PRODUCT USED FOR UNKNOWN INDICATION
     Route: 065
  3. LITHIUM. [Suspect]
     Active Substance: LITHIUM
     Indication: BIPOLAR DISORDER
     Dosage: IN THE MORNING. STARTED MANY YEARS AGO, ONGOING.
     Route: 048
  4. PURAN [Concomitant]
     Active Substance: LEVOTHYROXINE SODIUM
     Dosage: FORM STRENGTH: 100MCG. BEFORE BREAKFAST. SHE BELIEVES IT STARTED IN 2017, ONGOING
     Route: 048
     Dates: start: 2017
  5. PURAN [Concomitant]
     Active Substance: LEVOTHYROXINE SODIUM
     Indication: AUTOIMMUNE THYROIDITIS
     Dosage: FORM STRENGTH 25MCG, USED BEFORE.
     Route: 048
  6. OLANZAPINE. [Concomitant]
     Active Substance: OLANZAPINE
     Indication: BIPOLAR DISORDER
     Dosage: MORNING, NIGHT. DOES NOT KNOW END DATE.
     Route: 048
     Dates: start: 201501

REACTIONS (14)
  - Facial pain [Recovered/Resolved]
  - Tongue movement disturbance [Not Recovered/Not Resolved]
  - Intracranial mass [Not Recovered/Not Resolved]
  - Weight decreased [Recovered/Resolved]
  - Hypoaesthesia [Recovered/Resolved]
  - Alopecia [Unknown]
  - Depression [Unknown]
  - Cerebrovascular accident [Unknown]
  - Essential tremor [Unknown]
  - Skin disorder [Unknown]
  - Alopecia [Recovered/Resolved]
  - Hemiplegia [Unknown]
  - Tremor [Recovered/Resolved]
  - Diarrhoea [Recovered/Resolved]

NARRATIVE: CASE EVENT DATE: 20191227
